FAERS Safety Report 15289850 (Version 2)
Quarter: 2018Q3

REPORT INFORMATION
  Report Type: Report from Study
  Country: US (occurrence: US)
  Receive Date: 20180817
  Receipt Date: 20180905
  Transmission Date: 20181010
  Serious: Yes (Death)
  Sender: FDA-Public Use
  Company Number: US-PFIZER INC-2018331609

PATIENT
  Age: 25 Year
  Sex: Male

DRUGS (4)
  1. ALPRAZOLAM. [Suspect]
     Active Substance: ALPRAZOLAM
     Dosage: UNK
  2. HEROIN [Suspect]
     Active Substance: DIAMORPHINE
     Dosage: UNK
  3. ALCOHOL. [Suspect]
     Active Substance: ALCOHOL
     Dosage: UNK
  4. COCAINE [Suspect]
     Active Substance: COCAINE
     Dosage: UNK

REACTIONS (13)
  - Respiratory depression [Fatal]
  - Brain death [Fatal]
  - Myocardial ischaemia [Fatal]
  - Hepatotoxicity [Fatal]
  - Acute kidney injury [Fatal]
  - Toxicity to various agents [Fatal]
  - Myocardial infarction [Fatal]
  - Coma [Fatal]
  - Depressed level of consciousness [Fatal]
  - Anion gap [Fatal]
  - Metabolic acidosis [Fatal]
  - Hypotension [Fatal]
  - Pancreatitis [Fatal]
